FAERS Safety Report 8015783-1 (Version None)
Quarter: 2011Q4

REPORT INFORMATION
  Report Type: 
  Country: None (occurrence: None)
  Receive Date: 20111230
  Receipt Date: 20111226
  Transmission Date: 20120403
  Serious: Yes (Other)
  Sender: FDA-Public Use
  Company Number: FR-ROCHE-1016752

PATIENT
  Sex: Female
  Weight: 50 kg

DRUGS (12)
  1. TRANDOLAPRIL [Concomitant]
  2. BISOPROLOL FUMARATE [Concomitant]
  3. ACTEMRA [Suspect]
     Indication: RHEUMATOID ARTHRITIS
  4. OXYCONTIN [Concomitant]
     Indication: RHEUMATOID ARTHRITIS
     Route: 048
  5. PLAVIX [Concomitant]
     Route: 048
  6. ACTEMRA [Suspect]
     Route: 042
     Dates: start: 20110922
  7. PAROXETINE HCL [Concomitant]
  8. LEXOMIL [Concomitant]
  9. FUROSEMIDE [Concomitant]
  10. ASPIRIN [Concomitant]
  11. OMEPRAZOLE [Concomitant]
  12. ARANESP [Concomitant]

REACTIONS (2)
  - RENAL FAILURE [None]
  - BLOOD CREATININE INCREASED [None]
